FAERS Safety Report 8903533 (Version 1)
Quarter: 2012Q4

REPORT INFORMATION
  Report Type: 
  Country: US (occurrence: US)
  Receive Date: 20121113
  Receipt Date: 20121113
  Transmission Date: 20130627
  Serious: No
  Sender: FDA-Public Use
  Company Number: US-BAUSCH-2011BL008843

PATIENT
  Sex: Female

DRUGS (1)
  1. MIOCHOL E [Suspect]

REACTIONS (1)
  - Laceration [Unknown]
